FAERS Safety Report 13439602 (Version 2)
Quarter: 2018Q2

REPORT INFORMATION
  Report Type: Report from Study
  Country: CN (occurrence: CN)
  Receive Date: 20170413
  Receipt Date: 20180601
  Transmission Date: 20180711
  Serious: Yes (Other)
  Sender: FDA-Public Use
  Company Number: PHHY2017CN053809

PATIENT
  Age: 55 Year
  Sex: Male

DRUGS (103)
  1. MYFORTIC [Suspect]
     Active Substance: MYCOPHENOLATE SODIUM
     Dosage: 720 MG, QD
     Route: 065
     Dates: start: 20151022, end: 20151031
  2. ALBUMIN [Concomitant]
     Active Substance: ALBUMIN HUMAN
     Dosage: 25 G, QD
     Route: 042
     Dates: start: 20151030, end: 20151030
  3. ALBUMIN [Concomitant]
     Active Substance: ALBUMIN HUMAN
     Dosage: 25000 MG, QD
     Route: 042
     Dates: start: 20151103, end: 20151104
  4. OMEPRAZOLE SODIUM [Concomitant]
     Active Substance: OMEPRAZOLE SODIUM
     Indication: GASTRITIS PROPHYLAXIS
     Dosage: 40 MG, QD
     Route: 042
     Dates: start: 20151019, end: 20151020
  5. DOPAMINE [Concomitant]
     Active Substance: DOPAMINE\DOPAMINE HYDROCHLORIDE
     Indication: PROPHYLAXIS
     Dosage: 20 MG, QD
     Route: 042
     Dates: start: 20151026, end: 20151026
  6. VFEND [Concomitant]
     Active Substance: VORICONAZOLE
     Dosage: 200 MG, QD
     Route: 042
     Dates: start: 20151031, end: 20151104
  7. ELIN MAGNESIUM SULFATE [Concomitant]
     Indication: PRODUCT USED FOR UNKNOWN INDICATION
     Dosage: 3.2 ML, BID
     Route: 042
     Dates: start: 20151019, end: 20151019
  8. HUMAN IMMUNOGLOBULIN [Concomitant]
     Active Substance: HUMAN IMMUNOGLOBULIN G
     Dosage: 10 G, QD
     Route: 042
     Dates: start: 20151103, end: 20151104
  9. LACTULOSE. [Concomitant]
     Active Substance: LACTULOSE
     Indication: GASTRITIS PROPHYLAXIS
     Dosage: 66.7 G, QD
     Route: 048
     Dates: start: 20151027, end: 20151027
  10. APO NITROGLYCERIN [Concomitant]
     Dosage: 10 MG, QID
     Route: 042
     Dates: start: 20151021, end: 20151021
  11. APO NITROGLYCERIN [Concomitant]
     Dosage: 10 MG, BID
     Route: 042
     Dates: start: 20151022, end: 20151022
  12. APO NITROGLYCERIN [Concomitant]
     Dosage: 10 MG, BID
     Route: 042
     Dates: start: 20151031, end: 20151031
  13. DOPAMINE HYDROCHLORIDE. [Concomitant]
     Active Substance: DOPAMINE HYDROCHLORIDE
     Dosage: 40 MG, BID
     Route: 042
     Dates: start: 20151026, end: 20151031
  14. DOLANTIN [Concomitant]
     Active Substance: MEPERIDINE
     Indication: SEDATION
     Dosage: 50 MG, BID
     Route: 030
     Dates: start: 20151022, end: 20151023
  15. AMPHOMYCIN [Concomitant]
     Indication: INFECTION PROPHYLAXIS
     Dosage: 5 MG, BID
     Route: 042
     Dates: start: 20151019, end: 20151020
  16. FUROSEMIDE. [Concomitant]
     Active Substance: FUROSEMIDE
     Indication: DYSURIA
     Dosage: 60 MG, BID
     Route: 042
     Dates: start: 20151019, end: 20151019
  17. FUROSEMIDE. [Concomitant]
     Active Substance: FUROSEMIDE
     Dosage: 100 MG, BID
     Route: 042
     Dates: start: 20151021, end: 20151025
  18. BASILIXIMAB [Suspect]
     Active Substance: BASILIXIMAB
     Indication: RENAL TRANSPLANT
     Dosage: 20 MG, QD
     Route: 065
     Dates: start: 20151019, end: 20151019
  19. TACROLIMUS. [Suspect]
     Active Substance: TACROLIMUS
     Dosage: 4 MG, QD
     Route: 065
     Dates: start: 20151027, end: 20151031
  20. ALBUMIN [Concomitant]
     Active Substance: ALBUMIN HUMAN
     Indication: BLOOD OSMOLARITY DECREASED
     Dosage: 25000 MG, QD
     Route: 042
     Dates: start: 20151019, end: 20151019
  21. PHENTOLAMINE MESYLATE. [Concomitant]
     Active Substance: PHENTOLAMINE MESYLATE
     Indication: PROPHYLAXIS
     Dosage: 20 MG, QD
     Route: 042
     Dates: start: 20151019, end: 20151020
  22. CALCIUM [Concomitant]
     Active Substance: CALCIUM
     Dosage: 4 G, QD
     Route: 042
     Dates: start: 20151101, end: 20151101
  23. CALCIUM [Concomitant]
     Active Substance: CALCIUM
     Dosage: 4000 MG, QD
     Route: 042
     Dates: start: 20151103, end: 20151103
  24. POTASSIUM CHLORIDE. [Concomitant]
     Active Substance: POTASSIUM CHLORIDE
     Indication: PRODUCT USED FOR UNKNOWN INDICATION
     Dosage: 30 ML, QD
     Route: 048
     Dates: start: 20151026, end: 20151026
  25. VISIPAQUE [Concomitant]
     Active Substance: IODIXANOL
     Indication: PRODUCT USED FOR UNKNOWN INDICATION
     Dosage: 100 ML, QD
     Route: 065
     Dates: start: 20151101, end: 20151101
  26. SODIUM NITROPRUSSIDE. [Concomitant]
     Active Substance: SODIUM NITROPRUSSIDE
     Dosage: 50 MG, QD
     Route: 042
     Dates: start: 20151101, end: 20151101
  27. APO NITROGLYCERIN [Concomitant]
     Indication: BLOOD PRESSURE INCREASED
     Dosage: 10 MG, BID
     Route: 042
     Dates: start: 20151020, end: 20151020
  28. DOPAMINE HYDROCHLORIDE. [Concomitant]
     Active Substance: DOPAMINE HYDROCHLORIDE
     Indication: DYSURIA
     Dosage: 40 MG, QD
     Route: 042
     Dates: start: 20151019, end: 20151020
  29. LIDOCAINE HYDROCHLORIDE. [Concomitant]
     Active Substance: LIDOCAINE HYDROCHLORIDE
     Indication: PRODUCT USED FOR UNKNOWN INDICATION
     Dosage: 10 ML, QD
     Route: 042
     Dates: start: 20151101, end: 20151101
  30. DOLANTIN [Concomitant]
     Active Substance: MEPERIDINE
     Indication: ANALGESIC THERAPY
     Dosage: 50 MG, BID
     Route: 030
     Dates: start: 20151102, end: 20151104
  31. FUROSEMIDE. [Concomitant]
     Active Substance: FUROSEMIDE
     Dosage: 100 MG, BID
     Route: 042
     Dates: start: 20151027, end: 20151031
  32. DIAZEPAM. [Concomitant]
     Active Substance: DIAZEPAM
     Indication: SEDATION
     Dosage: 5 MG, BID
     Route: 030
     Dates: start: 20151102, end: 20151103
  33. CARBAZOCHROME SODIUM SULFONATE [Concomitant]
     Active Substance: CARBAZOCHROME SODIUM SULFONATE
     Indication: HAEMORRHAGE PROPHYLAXIS
     Dosage: 80 MG, BID
     Route: 042
     Dates: start: 20151031, end: 20151031
  34. ELIN MAGNESIUM SULFATE [Concomitant]
     Dosage: 3.2 ML, QD
     Route: 042
     Dates: start: 20151022, end: 20151023
  35. REGULAR INSULIN NOVO NORDISK [Concomitant]
     Active Substance: INSULIN HUMAN
     Dosage: 12 IU, QD
     Route: 042
     Dates: start: 20151019, end: 20151019
  36. REGULAR INSULIN NOVO NORDISK [Concomitant]
     Active Substance: INSULIN HUMAN
     Dosage: 12 IU, QD
     Route: 042
     Dates: start: 20151031, end: 20151031
  37. SODIUM BICARBONATE. [Concomitant]
     Active Substance: SODIUM BICARBONATE
     Dosage: 150 ML, QD
     Route: 042
     Dates: start: 20151025, end: 20151026
  38. VITAMIN C [Concomitant]
     Active Substance: ASCORBIC ACID
     Indication: PRODUCT USED FOR UNKNOWN INDICATION
     Dosage: 100 ML, QD
     Route: 042
     Dates: start: 20151025, end: 20151026
  39. DOPAMINE HYDROCHLORIDE. [Concomitant]
     Active Substance: DOPAMINE HYDROCHLORIDE
     Dosage: 40 MG, BID
     Route: 042
     Dates: start: 20151021, end: 20151025
  40. FUROSEMIDE. [Concomitant]
     Active Substance: FUROSEMIDE
     Dosage: 100 MG, BID
     Route: 042
     Dates: start: 20151019, end: 20151020
  41. LEVOCARNITINE. [Concomitant]
     Active Substance: LEVOCARNITINE
     Indication: SUPPLEMENTATION THERAPY
  42. ESZOPICLONE. [Concomitant]
     Active Substance: ESZOPICLONE
     Indication: SLEEP DISORDER
     Dosage: 7.5 MG, QD
     Route: 048
     Dates: start: 20151102, end: 20151102
  43. ASPIRIN. [Concomitant]
     Active Substance: ASPIRIN
     Indication: THROMBOSIS PROPHYLAXIS
     Dosage: 100 MG, QD
     Route: 048
     Dates: start: 20151102
  44. DOPAMINE [Concomitant]
     Active Substance: DOPAMINE\DOPAMINE HYDROCHLORIDE
     Indication: DYSURIA
  45. VFEND [Concomitant]
     Active Substance: VORICONAZOLE
     Indication: INFECTION PROPHYLAXIS
     Dosage: 200 MG, QD
     Route: 042
     Dates: start: 20151031, end: 20151031
  46. PHENTOLAMINE MESYLATE. [Concomitant]
     Active Substance: PHENTOLAMINE MESYLATE
     Indication: DYSURIA
     Dosage: 20 MG, BID
     Route: 042
     Dates: start: 20151021, end: 20151025
  47. SODIUM NITROPRUSSIDE. [Concomitant]
     Active Substance: SODIUM NITROPRUSSIDE
     Indication: BLOOD PRESSURE INCREASED
     Dosage: 100 MG, QD
     Route: 042
     Dates: start: 20151022, end: 20151022
  48. SODIUM NITROPRUSSIDE. [Concomitant]
     Active Substance: SODIUM NITROPRUSSIDE
     Dosage: 50 MG, QD
     Route: 042
     Dates: start: 20151031, end: 20151031
  49. PROMETHAZINE [Concomitant]
     Active Substance: PROMETHAZINE\PROMETHAZINE HYDROCHLORIDE
     Dosage: 25 MG, QD
     Route: 030
     Dates: start: 20151102, end: 20151102
  50. IPRATROPIUM BROMIDE. [Concomitant]
     Active Substance: IPRATROPIUM BROMIDE
     Indication: INFECTION PROPHYLAXIS
     Dosage: 0.5 MG, BID
     Route: 055
     Dates: start: 20151019, end: 20151024
  51. RECOMBINANT HUMAN ERYTHROPOIETIN [Concomitant]
     Active Substance: ERYTHROPOIETIN
     Indication: ANAEMIA PROPHYLAXIS
     Dosage: 6000 IU, QD
     Route: 042
     Dates: start: 20151102, end: 20151102
  52. AMPHOMYCIN [Concomitant]
     Dosage: 10 MG, QD
     Route: 042
     Dates: start: 20151022, end: 20151103
  53. FUROSEMIDE. [Concomitant]
     Active Substance: FUROSEMIDE
     Dosage: 60 MG, QD
     Route: 042
     Dates: start: 20151023, end: 20151023
  54. BASILIXIMAB [Suspect]
     Active Substance: BASILIXIMAB
     Dosage: 20 MG, QD
     Route: 065
     Dates: start: 20151023, end: 20151023
  55. OMEPRAZOLE SODIUM [Concomitant]
     Active Substance: OMEPRAZOLE SODIUM
     Dosage: 40 MG, QD
     Route: 042
     Dates: start: 20151020, end: 20151027
  56. OMEPRAZOLE SODIUM [Concomitant]
     Active Substance: OMEPRAZOLE SODIUM
     Indication: GASTRITIS PROPHYLAXIS
     Dosage: 10 MG, QD
     Route: 048
     Dates: start: 20151027
  57. DEXAMETHASONE SODIUM PHOSPHATE. [Concomitant]
     Active Substance: DEXAMETHASONE SODIUM PHOSPHATE
     Indication: ALLERGY PROPHYLAXIS
     Dosage: 5 MG, QD
     Route: 042
     Dates: start: 20151019, end: 20151019
  58. METOCLOPRAMIDE. [Concomitant]
     Active Substance: METOCLOPRAMIDE
     Indication: PROPHYLAXIS OF NAUSEA AND VOMITING
     Dosage: 10 MG, QD
     Route: 030
     Dates: start: 20151020, end: 20151021
  59. REGULAR INSULIN NOVO NORDISK [Concomitant]
     Active Substance: INSULIN HUMAN
     Indication: PRODUCT USED FOR UNKNOWN INDICATION
     Dosage: 6 IU, QD
     Route: 042
     Dates: start: 20151019, end: 20151019
  60. SODIUM BICARBONATE. [Concomitant]
     Active Substance: SODIUM BICARBONATE
     Dosage: 125 ML, QD
     Route: 042
     Dates: start: 20151021, end: 20151022
  61. SODIUM BICARBONATE. [Concomitant]
     Active Substance: SODIUM BICARBONATE
     Dosage: 875 ML, QD
     Route: 042
     Dates: start: 20151023, end: 20151023
  62. CEFMINOX SODIUM [Concomitant]
     Active Substance: CEFMINOX SODIUM
     Dosage: 2000 MG, BID
     Route: 042
     Dates: start: 20151031
  63. MUCOSOLVAN [Concomitant]
     Active Substance: AMBROXOL HYDROCHLORIDE
     Indication: PRODUCTIVE COUGH
     Dosage: 15 MG, BID
     Route: 055
     Dates: start: 20151024
  64. PROMETHAZINE [Concomitant]
     Active Substance: PROMETHAZINE\PROMETHAZINE HYDROCHLORIDE
     Dosage: 25 MG, BID
     Route: 030
     Dates: start: 20151022, end: 20151023
  65. FRUCTOSE [Concomitant]
     Active Substance: FRUCTOSE
     Indication: PRODUCT USED FOR UNKNOWN INDICATION
     Dosage: 25000 IU, QD
     Route: 042
     Dates: start: 20151019, end: 20151019
  66. AMPHOMYCIN [Concomitant]
     Dosage: 10 MG, QD
     Route: 042
     Dates: start: 20151020, end: 20151020
  67. METHYLPREDNISOLONE. [Suspect]
     Active Substance: METHYLPREDNISOLONE
     Indication: IMMUNOSUPPRESSANT DRUG THERAPY
     Dosage: 500 MG, QD
     Route: 065
     Dates: start: 20151019, end: 20151021
  68. TACROLIMUS. [Suspect]
     Active Substance: TACROLIMUS
     Dosage: 5 MG, QD
     Route: 065
     Dates: start: 20151022, end: 20151026
  69. DIAZEPAM. [Concomitant]
     Active Substance: DIAZEPAM
     Indication: PROPHYLAXIS
     Dosage: 5 MG, QD
     Route: 042
     Dates: start: 20151023, end: 20151023
  70. DIAZEPAM. [Concomitant]
     Active Substance: DIAZEPAM
     Indication: CONVULSION PROPHYLAXIS
  71. ETAMSYLATE [Concomitant]
     Active Substance: ETHAMSYLATE
     Indication: HAEMORRHAGE PROPHYLAXIS
     Dosage: 1000 MG, BID
     Route: 042
     Dates: start: 20151031, end: 20151031
  72. DROPERIDOL. [Concomitant]
     Active Substance: DROPERIDOL
     Indication: PROPHYLAXIS
     Dosage: 2.5 MG, QD
     Route: 042
     Dates: start: 20151103, end: 20151103
  73. CALCIUM [Concomitant]
     Active Substance: CALCIUM
     Indication: PRODUCT USED FOR UNKNOWN INDICATION
     Dosage: 20000 MG, QD
     Route: 042
     Dates: start: 20151020, end: 20151020
  74. POTASSIUM CHLORIDE. [Concomitant]
     Active Substance: POTASSIUM CHLORIDE
     Indication: PRODUCT USED FOR UNKNOWN INDICATION
     Dosage: 5 ML, BID
     Route: 042
     Dates: start: 20151019, end: 20151019
  75. POTASSIUM CHLORIDE. [Concomitant]
     Active Substance: POTASSIUM CHLORIDE
     Dosage: 5 ML, QD
     Route: 042
     Dates: start: 20151022, end: 20151023
  76. CALCIUM GLUCONATE. [Concomitant]
     Active Substance: CALCIUM GLUCONATE
     Indication: PROPHYLAXIS
     Dosage: 10 ML, BID
     Route: 042
     Dates: start: 20151019, end: 20151019
  77. CEFMINOX SODIUM [Concomitant]
     Active Substance: CEFMINOX SODIUM
     Indication: ANTIBIOTIC PROPHYLAXIS
     Dosage: 2000 MG, BID
     Route: 042
     Dates: start: 20151019, end: 20151021
  78. MUCOSOLVAN [Concomitant]
     Active Substance: AMBROXOL HYDROCHLORIDE
     Indication: PROPHYLAXIS
     Dosage: 15 MG, BID
     Route: 055
     Dates: start: 20151019, end: 20151024
  79. PROMETHAZINE [Concomitant]
     Active Substance: PROMETHAZINE\PROMETHAZINE HYDROCHLORIDE
     Indication: ALLERGY PROPHYLAXIS
     Dosage: 25 MG, QD
     Route: 030
     Dates: start: 20151020, end: 20151020
  80. LEVOCARNITINE. [Concomitant]
     Active Substance: LEVOCARNITINE
     Indication: PROPHYLAXIS
     Dosage: 1000 MG, QD
     Route: 042
     Dates: start: 20151102, end: 20151102
  81. PHENTOLAMINE MESYLATE. [Concomitant]
     Active Substance: PHENTOLAMINE MESYLATE
     Dosage: 20 MG, QD
     Route: 042
     Dates: start: 20151026, end: 20151026
  82. PHENTOLAMINE MESYLATE. [Concomitant]
     Active Substance: PHENTOLAMINE MESYLATE
     Dosage: 20 MG, BID
     Route: 042
     Dates: start: 20151027, end: 20151031
  83. ELIN MAGNESIUM SULFATE [Concomitant]
     Dosage: 38.4 ML, QD
     Route: 042
     Dates: start: 20151020, end: 20151020
  84. POTASSIUM CHLORIDE. [Concomitant]
     Active Substance: POTASSIUM CHLORIDE
     Dosage: 60 ML, QD
     Route: 042
     Dates: start: 20151020, end: 20151020
  85. ADALAT [Concomitant]
     Active Substance: NIFEDIPINE
     Indication: BLOOD PRESSURE INCREASED
     Dosage: 30 MG, QD
     Route: 048
     Dates: start: 20151023, end: 20151023
  86. BUCINNAZINE HYDROCHLORIDE [Concomitant]
     Indication: PAIN
     Dosage: 100 MG, QD
     Route: 030
     Dates: start: 20151102, end: 20151102
  87. HYTRINE [Concomitant]
     Active Substance: TERAZOSIN HYDROCHLORIDE
     Indication: BLOOD PRESSURE INCREASED
     Dosage: 2 MG, QD
     Route: 048
     Dates: start: 20151023, end: 20151023
  88. IPRATROPIUM BROMIDE. [Concomitant]
     Active Substance: IPRATROPIUM BROMIDE
     Indication: PRODUCTIVE COUGH
     Dosage: 0.5 MG, BID
     Route: 055
     Dates: start: 20151024, end: 20151030
  89. FRUCTOSE [Concomitant]
     Active Substance: FRUCTOSE
     Dosage: 25000 IU, QD
     Route: 042
     Dates: start: 20151021, end: 20151021
  90. FUROSEMIDE. [Concomitant]
     Active Substance: FUROSEMIDE
     Dosage: 200 MG, QD
     Route: 042
     Dates: start: 20151026, end: 20151026
  91. ESZOPICLONE. [Concomitant]
     Active Substance: ESZOPICLONE
     Indication: PRODUCT USED FOR UNKNOWN INDICATION
     Dosage: 7.5 MG, QD
     Route: 048
     Dates: start: 20151023, end: 20151023
  92. MYFORTIC [Suspect]
     Active Substance: MYCOPHENOLATE SODIUM
     Indication: RENAL TRANSPLANT
     Dosage: 1440 MG, QD
     Route: 065
     Dates: start: 20151019, end: 20151021
  93. PREDNISONE. [Suspect]
     Active Substance: PREDNISONE
     Indication: IMMUNOSUPPRESSANT DRUG THERAPY
     Dosage: 30 MG, QD
     Route: 065
     Dates: start: 20151021, end: 20151031
  94. TACROLIMUS. [Suspect]
     Active Substance: TACROLIMUS
     Indication: IMMUNOSUPPRESSANT DRUG THERAPY
     Dosage: 3 MG, QD
     Route: 065
     Dates: start: 20151019, end: 20151021
  95. METOCLOPRAMIDE. [Concomitant]
     Active Substance: METOCLOPRAMIDE
     Dosage: 10 MG, QD
     Route: 030
     Dates: start: 20151022, end: 20151022
  96. CALCIUM GLUCONATE. [Concomitant]
     Active Substance: CALCIUM GLUCONATE
     Dosage: 10 ML, BID
     Route: 042
     Dates: start: 20151103, end: 20151103
  97. HUMAN IMMUNOGLOBULIN [Concomitant]
     Active Substance: HUMAN IMMUNOGLOBULIN G
     Indication: PROPHYLAXIS
     Dosage: 10000 MG, QD
     Route: 042
     Dates: start: 20151029, end: 20151030
  98. SODIUM BICARBONATE. [Concomitant]
     Active Substance: SODIUM BICARBONATE
     Indication: ELECTROLYTE IMBALANCE
     Dosage: 150 ML, BID
     Route: 042
     Dates: start: 20151019, end: 20151019
  99. SODIUM NITROPRUSSIDE. [Concomitant]
     Active Substance: SODIUM NITROPRUSSIDE
     Dosage: 100 MG, QD
     Route: 042
     Dates: start: 20151103, end: 20151103
  100. MUCOSOLVAN [Concomitant]
     Active Substance: AMBROXOL HYDROCHLORIDE
     Indication: INFECTION PROPHYLAXIS
  101. PROMETHAZINE [Concomitant]
     Active Substance: PROMETHAZINE\PROMETHAZINE HYDROCHLORIDE
     Dosage: 25 MG, QD
     Route: 030
     Dates: start: 20151031, end: 20151031
  102. AMPHOMYCIN [Concomitant]
     Dosage: 40 MG, QD
     Route: 042
     Dates: start: 20151103
  103. FUROSEMIDE. [Concomitant]
     Active Substance: FUROSEMIDE
     Dosage: 60 MG, QD
     Route: 042
     Dates: start: 20151020, end: 20151021

REACTIONS (6)
  - Haemoglobin decreased [Unknown]
  - Neutrophil count increased [Unknown]
  - Hypoalbuminaemia [Unknown]
  - Bacteraemia [Recovering/Resolving]
  - C-reactive protein increased [Unknown]
  - Blood urea increased [Unknown]

NARRATIVE: CASE EVENT DATE: 20151022
